FAERS Safety Report 16359807 (Version 3)
Quarter: 2019Q2

REPORT INFORMATION
  Report Type: Spontaneous
  Country: US (occurrence: US)
  Receive Date: 20190528
  Receipt Date: 20190613
  Transmission Date: 20190711
  Serious: Yes (Life-Threatening, Hospitalization, Other)
  Sender: FDA-Public Use
  Company Number: US-DRREDDYS-USA/USA/19/0110608

PATIENT
  Age: 6 Decade
  Sex: Male

DRUGS (7)
  1. MELOXICAM. [Suspect]
     Active Substance: MELOXICAM
     Indication: ARTHRALGIA
     Route: 048
  2. FLUOXETINE [Suspect]
     Active Substance: FLUOXETINE HYDROCHLORIDE
     Indication: AFFECTIVE DISORDER
     Route: 048
  3. LAMOTRIGINE TABLETS [Suspect]
     Active Substance: LAMOTRIGINE
     Indication: AFFECTIVE DISORDER
     Route: 048
  4. DESMOPRESSIN [Interacting]
     Active Substance: DESMOPRESSIN
     Indication: URINARY INCONTINENCE
     Dosage: AT BED TIME
     Route: 048
  5. CLOZAPINE. [Concomitant]
     Active Substance: CLOZAPINE
     Indication: SCHIZOPHRENIA
     Dosage: 225 MG BY MOUTH EVERY MORNING
     Route: 048
  6. LAMOTRIGINE TABLETS [Suspect]
     Active Substance: LAMOTRIGINE
     Indication: SEIZURE PROPHYLAXIS
  7. CLOZAPINE. [Concomitant]
     Active Substance: CLOZAPINE
     Dosage: 400 MG ON AT BEDTIME FOR A DECADE
     Route: 048

REACTIONS (7)
  - Drug ineffective [Unknown]
  - Off label use [Unknown]
  - Drug interaction [Unknown]
  - Hyponatraemia [Unknown]
  - Fluid retention [Unknown]
  - Generalised tonic-clonic seizure [Recovered/Resolved]
  - Water intoxication [Unknown]
